FAERS Safety Report 11543966 (Version 1)
Quarter: 2015Q3

REPORT INFORMATION
  Report Type: Spontaneous
  Country: US (occurrence: US)
  Receive Date: 20150924
  Receipt Date: 20150924
  Transmission Date: 20151125
  Serious: No
  Sender: FDA-Public Use
  Company Number: PHEH2014US021198

PATIENT
  Age: 63 Year
  Sex: Female

DRUGS (7)
  1. PRAVASTATIN [Suspect]
     Active Substance: PRAVASTATIN\PRAVASTATIN SODIUM
     Indication: BLOOD CHOLESTEROL INCREASED
     Dosage: 20 MG, QD
     Route: 065
  2. VOLTAREN [Suspect]
     Active Substance: DICLOFENAC SODIUM
     Dosage: 75 MG, QD
  3. PLAQUENIL [Concomitant]
     Active Substance: HYDROXYCHLOROQUINE SULFATE
     Indication: RHEUMATOID ARTHRITIS
     Dosage: 200 MG, BID
     Route: 065
  4. LEVOTHYROXINE. [Concomitant]
     Active Substance: LEVOTHYROXINE
     Indication: THYROID DISORDER
     Dosage: 100 UG, QD
     Route: 065
  5. LIPITOR [Concomitant]
     Active Substance: ATORVASTATIN CALCIUM
     Indication: BLOOD CHOLESTEROL INCREASED
     Dosage: 40 MG, QD
     Route: 065
     Dates: start: 20140825
  6. HUMIRA [Suspect]
     Active Substance: ADALIMUMAB
     Indication: RHEUMATOID ARTHRITIS
     Dosage: 40 MG, ONCE IN 2 WEEKS
     Route: 065
     Dates: start: 20140608, end: 201409
  7. VOLTAREN [Suspect]
     Active Substance: DICLOFENAC SODIUM
     Indication: RHEUMATOID ARTHRITIS
     Dosage: 75 MG, BID
     Route: 065

REACTIONS (11)
  - Injection site rash [Unknown]
  - Hepatic enzyme increased [Unknown]
  - Rash pruritic [Unknown]
  - Drug ineffective [Unknown]
  - Rash papular [Unknown]
  - Rash macular [Unknown]
  - Incorrect dose administered [Unknown]
  - Malaise [Unknown]
  - Injection site urticaria [Recovered/Resolved]
  - Wrong technique in product usage process [Unknown]
  - Injection site erythema [Recovered/Resolved]

NARRATIVE: CASE EVENT DATE: 2014
